FAERS Safety Report 5257253-X (Version None)
Quarter: 2007Q1

REPORT INFORMATION
  Report Type: 
  Country: None (occurrence: None)
  Receive Date: 20070302
  Receipt Date: 20070221
  Transmission Date: 20070707
  Serious: Yes (Hospitalization, Other)
  Sender: FDA-Public Use
  Company Number: 2007SP003404

PATIENT
  Age: 39 Year
  Sex: Male
  Weight: 129 kg

DRUGS (14)
  1. PEG-INTRON [Suspect]
     Indication: HEPATITIS C
     Dosage: 90 MCG;QW;SC
     Route: 058
     Dates: start: 20070126, end: 20070205
  2. RIBAVIRIN [Suspect]
     Indication: HEPATITIS C
     Dosage: 400 MG;BID;PO
     Route: 048
     Dates: start: 20070126, end: 20070202
  3. DEMADEX /01036501/ (CON.) [Concomitant]
  4. PROGRAF (CON.) [Concomitant]
  5. PREDNISONE (CON.) [Concomitant]
  6. NEXIUM (CON.) [Concomitant]
  7. PREVACID (CON.) [Concomitant]
  8. ZYPREXA (CON.) [Concomitant]
  9. ALDACTONE (CON.) [Concomitant]
  10. VALCYTE (CON.) [Concomitant]
  11. NEURONTIN (CON.) [Concomitant]
  12. ATENOLOL (CON.) [Concomitant]
  13. MULTIVITAMIN (CON.) [Concomitant]
  14. PERCOCET (CON.) [Concomitant]

REACTIONS (5)
  - ABDOMINAL DISTENSION [None]
  - ASCITES [None]
  - DYSPNOEA [None]
  - PLEURAL EFFUSION [None]
  - RENAL FAILURE [None]
